FAERS Safety Report 21662672 (Version 1)
Quarter: 2022Q4

REPORT INFORMATION
  Report Type: Spontaneous
  Country: CN (occurrence: CN)
  Receive Date: 20221130
  Receipt Date: 20221130
  Transmission Date: 20230113
  Serious: Yes (Other)
  Sender: FDA-Public Use
  Company Number: CN-MYLANLABS-2022M1133175

PATIENT
  Age: 84 Year
  Sex: Male
  Weight: 66.6 kg

DRUGS (1)
  1. NITROSTAT [Suspect]
     Active Substance: NITROGLYCERIN
     Indication: Retinal artery occlusion
     Dosage: 600 MICROGRAM, QD (600 MICROGRAM, QD)
     Route: 060
     Dates: start: 20221117, end: 20221117

REACTIONS (6)
  - Hypotension [Recovering/Resolving]
  - Dyspepsia [Recovering/Resolving]
  - Mental disorder [Recovering/Resolving]
  - Cyanosis [Recovering/Resolving]
  - Blood glucose increased [Recovering/Resolving]
  - Dizziness [Recovering/Resolving]

NARRATIVE: CASE EVENT DATE: 20221117
